FAERS Safety Report 5875701-9 (Version None)
Quarter: 2008Q3

REPORT INFORMATION
  Report Type: 
  Country: None (occurrence: None)
  Receive Date: 20080905
  Receipt Date: 20080821
  Transmission Date: 20090109
  Serious: Yes (Other)
  Sender: FDA-Public Use
  Company Number: 8036229

PATIENT

DRUGS (3)
  1. KEPPRA [Suspect]
  2. TASIGNA [Suspect]
  3. GLEEVEC [Concomitant]

REACTIONS (2)
  - BLAST CRISIS IN MYELOGENOUS LEUKAEMIA [None]
  - DRUG INTERACTION [None]
